FAERS Safety Report 8492890 (Version 6)
Quarter: 2020Q3

REPORT INFORMATION
  Report Type: Spontaneous
  Country: US (occurrence: US)
  Receive Date: 20120404
  Receipt Date: 20200821
  Transmission Date: 20201103
  Serious: Yes (Other)
  Sender: FDA-Public Use
  Company Number: US-PFIZER INC-2012082145

PATIENT
  Age: 35 Year
  Sex: Female
  Weight: 90.7 kg

DRUGS (5)
  1. LYRICA [Suspect]
     Active Substance: PREGABALIN
     Indication: FIBROMYALGIA
     Dosage: 100 MG, 3X/DAY
     Route: 048
     Dates: start: 2006, end: 20120329
  2. LYRICA [Suspect]
     Active Substance: PREGABALIN
     Indication: IMMUNE SYSTEM DISORDER
  3. ULTRAM [Concomitant]
     Active Substance: TRAMADOL HYDROCHLORIDE
     Dosage: UNK
  4. HYDROCODONE [Concomitant]
     Active Substance: HYDROCODONE
     Dosage: UNK
  5. LEVOTHYROXINE. [Concomitant]
     Active Substance: LEVOTHYROXINE
     Indication: HYPOTHYROIDISM
     Dosage: UNK

REACTIONS (5)
  - Malaise [Not Recovered/Not Resolved]
  - Vitamin D deficiency [Unknown]
  - Drug dependence [Unknown]
  - Pain [Unknown]
  - Nausea [Not Recovered/Not Resolved]

NARRATIVE: CASE EVENT DATE: 20120330
